FAERS Safety Report 22988697 (Version 3)
Quarter: 2023Q4

REPORT INFORMATION
  Report Type: Report from Study
  Country: US (occurrence: US)
  Receive Date: 20230926
  Receipt Date: 20231213
  Transmission Date: 20240110
  Serious: No
  Sender: FDA-Public Use
  Company Number: US-002147023-NVSC2023US205249

PATIENT
  Sex: Female

DRUGS (1)
  1. KESIMPTA [Suspect]
     Active Substance: OFATUMUMAB
     Indication: Multiple sclerosis
     Dosage: UNK
     Route: 065

REACTIONS (8)
  - Inflammation [Unknown]
  - Meniscus injury [Unknown]
  - Brain fog [Unknown]
  - Arthritis [Unknown]
  - Gait disturbance [Unknown]
  - Temperature intolerance [Unknown]
  - Bone disorder [Unknown]
  - Fatigue [Unknown]
